FAERS Safety Report 10339513 (Version 2)
Quarter: 2014Q1

REPORT INFORMATION
  Report Type: Spontaneous
  Country: US (occurrence: None)
  Receive Date: 20120817
  Receipt Date: 20130815
  Transmission Date: 20141002
  Serious: Yes (Other)
  Sender: FDA-Public Use
  Company Number: ADR-2012-00393

PATIENT
  Sex: Male

DRUGS (4)
  1. BACLOFEN INTRATHECAL (BACLOFEN INJECTION) 500 MCG/ML [Suspect]
     Indication: MUSCLE SPASTICITY
  2. BACLOFEN INTRATHECAL (BACLOFEN INJECTION) 500 MCG/ML [Suspect]
  3. BACLOFEN INTRATHECAL (BACLOFEN INJECTION) 500 MCG/ML [Suspect]
     Indication: SPINAL CORD DISORDER
  4. DILAUDID [Concomitant]

REACTIONS (2)
  - Therapeutic response decreased [None]
  - Pain [None]
